FAERS Safety Report 4550075-4 (Version None)
Quarter: 2005Q1

REPORT INFORMATION
  Report Type: 
  Country: None (occurrence: None)
  Receive Date: 20050111
  Receipt Date: 20050111
  Transmission Date: 20050727
  Serious: No
  Sender: FDA-Public Use
  Company Number: None

PATIENT
  Age: 20 Year
  Sex: Male
  Weight: 40.8237 kg

DRUGS (1)
  1. DEPAKENE [Suspect]
     Indication: CONVULSION
     Dosage: ONE TSP BID

REACTIONS (1)
  - VOMITING [None]
